FAERS Safety Report 6225801-9 (Version None)
Quarter: 2009Q2

REPORT INFORMATION
  Report Type: 
  Country: None (occurrence: None)
  Receive Date: 20090612
  Receipt Date: 20090424
  Transmission Date: 20091009
  Serious: No
  Sender: FDA-Public Use
  Company Number: US-ABBOTT-09P-163-0569987-00

PATIENT
  Sex: Female

DRUGS (5)
  1. HUMIRA [Suspect]
     Indication: PSORIASIS
     Route: 058
     Dates: start: 20090201
  2. DECLINE LONG  LIST [Concomitant]
     Indication: DRUG USE FOR UNKNOWN INDICATION
  3. UNNAMED CHOLESTEROL [Concomitant]
     Indication: DRUG USE FOR UNKNOWN INDICATION
  4. SINUS MEDICATION [Concomitant]
     Indication: DRUG USE FOR UNKNOWN INDICATION
  5. MANY MIGARINE MEDICATIONS [Concomitant]
     Indication: DRUG USE FOR UNKNOWN INDICATION

REACTIONS (1)
  - SINUSITIS [None]
